FAERS Safety Report 21064727 (Version 1)
Quarter: 2022Q3

REPORT INFORMATION
  Report Type: Spontaneous
  Country: DE (occurrence: DE)
  Receive Date: 20220711
  Receipt Date: 20220711
  Transmission Date: 20221026
  Serious: Yes (Hospitalization, Other)
  Sender: FDA-Public Use
  Company Number: DE-NOVPHSZ-PHHY2014DE185054

PATIENT
  Age: 59 Year
  Sex: Male
  Weight: 80 kg

DRUGS (14)
  1. CISPLATIN [Suspect]
     Active Substance: CISPLATIN
     Indication: Non-small cell lung cancer
     Dosage: 75 MILLIGRAM/SQ. METER, CYCLE
     Route: 065
     Dates: start: 20140109, end: 20140109
  2. CISPLATIN [Suspect]
     Active Substance: CISPLATIN
     Dosage: 143 MILLIGRAM, CYCLE
     Route: 065
     Dates: start: 20140109, end: 20140109
  3. PEMETREXED [Suspect]
     Active Substance: PEMETREXED
     Indication: Non-small cell lung cancer
     Dosage: 143 MILLIGRAM, CYCLE
     Route: 065
     Dates: start: 20140109, end: 20140109
  4. PEMETREXED [Suspect]
     Active Substance: PEMETREXED
     Dosage: 950 MILLIGRAM, CYCLE
     Route: 065
     Dates: start: 20140109, end: 20140109
  5. BEVACIZUMAB [Suspect]
     Active Substance: BEVACIZUMAB
     Indication: Non-small cell lung cancer
     Dosage: 7.5 MILLIGRAM/KILOGRAM
     Route: 065
     Dates: start: 20140109, end: 20140109
  6. AVASTIN [Suspect]
     Active Substance: BEVACIZUMAB
     Indication: Non-small cell lung cancer
     Dosage: 586.5 MILLIGRAM, CYCLE
     Route: 065
     Dates: start: 20140109, end: 20140109
  7. FOLIC ACID [Concomitant]
     Active Substance: FOLIC ACID
     Indication: Non-small cell lung cancer
     Dosage: 0.4 MG, QD
     Route: 065
     Dates: start: 20140106
  8. AZILECT [Concomitant]
     Active Substance: RASAGILINE MESYLATE
     Indication: Parkinson^s disease
     Dosage: 1 MG, QD
     Route: 065
     Dates: start: 20140106
  9. PANTOZOL [Concomitant]
     Active Substance: PANTOPRAZOLE SODIUM
     Indication: Prophylaxis
     Dosage: 40 MG, QD
     Route: 065
  10. PRAMIPEXOLE [Concomitant]
     Active Substance: PRAMIPEXOLE
     Indication: Parkinson^s disease
     Dosage: 1.4 MG, QD
     Route: 065
     Dates: start: 20140106
  11. DEXAMETHASONE [Concomitant]
     Active Substance: DEXAMETHASONE
     Indication: Non-small cell lung cancer
     Dosage: 12 MG, QD
     Route: 065
     Dates: start: 20140108
  12. HALOPERIDOL [Concomitant]
     Active Substance: HALOPERIDOL
     Indication: Parkinson^s disease
     Dosage: 6 MG, QD (1-1-0-1)
     Route: 065
  13. LEUCOVORIN [Concomitant]
     Active Substance: LEUCOVORIN
     Indication: Non-small cell lung cancer
     Dosage: 0.4 MILLIGRAM, QD
     Route: 065
     Dates: start: 20140106
  14. SEROQUEL [Concomitant]
     Active Substance: QUETIAPINE FUMARATE
     Indication: Product used for unknown indication
     Dosage: 25 MG, UNK
     Route: 065

REACTIONS (3)
  - Leukopenia [Recovered/Resolved]
  - Thrombocytopenia [Recovered/Resolved]
  - Delirium [Recovered/Resolved]

NARRATIVE: CASE EVENT DATE: 20140118
